FAERS Safety Report 4967735-3 (Version None)
Quarter: 2006Q2

REPORT INFORMATION
  Report Type: 
  Country: None (occurrence: None)
  Receive Date: 20060410
  Receipt Date: 20051129
  Transmission Date: 20061013
  Serious: Yes (Hospitalization)
  Sender: FDA-Public Use
  Company Number: US-MERCK-0511USA04500

PATIENT
  Age: 66 Year
  Sex: Male
  Weight: 127 kg

DRUGS (10)
  1. VIOXX [Suspect]
     Indication: ARTHRITIS
     Route: 048
     Dates: start: 20010601, end: 20040701
  2. ASPIRIN [Concomitant]
     Indication: ANTICOAGULANT THERAPY
     Route: 048
  3. METOPROLOL-BC [Concomitant]
     Indication: HYPERTENSION
     Route: 048
  4. GLUCOPHAGE [Concomitant]
     Indication: DIABETES MELLITUS
     Route: 048
  5. VASOTEC [Concomitant]
     Indication: HYPERTENSION
     Route: 048
  6. DEMADEX [Concomitant]
     Indication: FLUID RETENTION
     Route: 048
  7. LANTUS [Concomitant]
     Indication: DIABETES MELLITUS
     Route: 058
  8. ZOCOR [Concomitant]
     Indication: BLOOD CHOLESTEROL INCREASED
     Route: 048
  9. BUSPAR [Concomitant]
     Indication: ANXIETY
     Route: 065
  10. HYZAAR [Concomitant]
     Indication: BLOOD CHOLESTEROL INCREASED
     Route: 048

REACTIONS (16)
  - ANHEDONIA [None]
  - ANXIETY [None]
  - ARTHROPATHY [None]
  - CARDIOVASCULAR DISORDER [None]
  - CHEST PAIN [None]
  - CORONARY ARTERY DISEASE [None]
  - DEPRESSION [None]
  - DYSPNOEA [None]
  - FLUID RETENTION [None]
  - GASTROOESOPHAGEAL REFLUX DISEASE [None]
  - HAEMOPTYSIS [None]
  - HYPERTENSION [None]
  - MYOCARDIAL INFARCTION [None]
  - OEDEMA PERIPHERAL [None]
  - PAIN [None]
  - SLEEP APNOEA SYNDROME [None]
